FAERS Safety Report 12216386 (Version 1)
Quarter: 2016Q1

REPORT INFORMATION
  Report Type: Spontaneous
  Country: US (occurrence: None)
  Receive Date: 20160328
  Receipt Date: 20160328
  Transmission Date: 20160526
  Serious: Yes (Death, Hospitalization)
  Sender: FDA-Public Use
  Company Number: None

PATIENT
  Age: 41 Year
  Sex: Female
  Weight: 63.3 kg

DRUGS (2)
  1. EVEROLIMUS 5MG PO [Suspect]
     Active Substance: EVEROLIMUS
     Indication: BREAST CANCER METASTATIC
     Route: 048
     Dates: start: 20160210, end: 20160322
  2. ERIBULIN 1.4MG/M2 IV [Suspect]
     Active Substance: ERIBULIN
     Indication: BREAST CANCER METASTATIC
     Dosage: 1.4MG/M2  D1, D8 (21-D CYCLE) IV
     Route: 042
     Dates: start: 20160210

REACTIONS (5)
  - Brain death [None]
  - Hydrocephalus [None]
  - Malignant neoplasm progression [None]
  - Brain herniation [None]
  - Breast cancer [None]

NARRATIVE: CASE EVENT DATE: 20160322
